FAERS Safety Report 12401163 (Version 1)
Quarter: 2016Q2

REPORT INFORMATION
  Report Type: Spontaneous
  Country: US (occurrence: None)
  Receive Date: 20160524
  Receipt Date: 20160524
  Transmission Date: 20160815
  Serious: Yes (Life-Threatening, Hospitalization, Disabling)
  Sender: FDA-Public Use
  Company Number: None

PATIENT
  Age: 84 Year
  Sex: Male
  Weight: 79.38 kg

DRUGS (1)
  1. VENLAFAXINE [Suspect]
     Active Substance: VENLAFAXINE HYDROCHLORIDE
     Indication: DEPRESSION
     Route: 048
     Dates: start: 20160401, end: 20160513

REACTIONS (5)
  - Hypoaesthesia [None]
  - Grip strength decreased [None]
  - Paraesthesia [None]
  - Dysphagia [None]
  - Guillain-Barre syndrome [None]

NARRATIVE: CASE EVENT DATE: 20160513
